FAERS Safety Report 8010246-1 (Version None)
Quarter: 2011Q4

REPORT INFORMATION
  Report Type: 
  Country: None (occurrence: None)
  Receive Date: 20111228
  Receipt Date: 20111221
  Transmission Date: 20120403
  Serious: Yes (Hospitalization)
  Sender: FDA-Public Use
  Company Number: GB-SHIRE-ALL1-2011-05050

PATIENT
  Sex: Male

DRUGS (1)
  1. REPLAGAL [Suspect]
     Indication: FABRY'S DISEASE
     Dosage: 7 MG, 1X/2WKS
     Route: 041
     Dates: start: 20080201

REACTIONS (6)
  - INFUSION RELATED REACTION [None]
  - ERYTHEMA [None]
  - LIP SWELLING [None]
  - THROAT IRRITATION [None]
  - EYELID OEDEMA [None]
  - COUGH [None]
